FAERS Safety Report 10173625 (Version 1)
Quarter: 2014Q2

REPORT INFORMATION
  Report Type: Spontaneous
  Country: US (occurrence: US)
  Receive Date: 20140515
  Receipt Date: 20140515
  Transmission Date: 20141212
  Serious: Yes (Other)
  Sender: FDA-Public Use
  Company Number: US-JNJFOC-20140506878

PATIENT
  Sex: Male

DRUGS (2)
  1. ZYRTEC IR 10MG TABLET [Suspect]
     Route: 048
  2. ZYRTEC IR 10MG TABLET [Suspect]
     Indication: MULTIPLE ALLERGIES
     Route: 048

REACTIONS (1)
  - Nephrolithiasis [Not Recovered/Not Resolved]
